FAERS Safety Report 8219906-0 (Version None)
Quarter: 2012Q1

REPORT INFORMATION
  Report Type: 
  Country: None (occurrence: None)
  Receive Date: 20120319
  Receipt Date: 20120313
  Transmission Date: 20120608
  Serious: Yes (Hospitalization)
  Sender: FDA-Public Use
  Company Number: NO-PFIZER INC-2012065795

PATIENT
  Age: 59 Year
  Sex: Female

DRUGS (4)
  1. ATORVASTATIN [Concomitant]
     Dosage: UNK
     Route: 048
  2. BRUFEN RETARD [Concomitant]
     Dosage: 800 MG, AS NEEDED
     Route: 048
  3. NEURONTIN [Suspect]
     Indication: BACK PAIN
     Dosage: 1200 MG, 3X/DAY
     Route: 048
     Dates: end: 20111128
  4. LIVIAL [Concomitant]
     Dosage: 2.5 MG, 1X/DAY
     Route: 048

REACTIONS (11)
  - HYPERTENSION [None]
  - MYALGIA [None]
  - TREMOR [None]
  - DIARRHOEA [None]
  - DECREASED APPETITE [None]
  - INSOMNIA [None]
  - DIZZINESS [None]
  - MALAISE [None]
  - ASTHENIA [None]
  - INFLUENZA LIKE ILLNESS [None]
  - NAUSEA [None]
